FAERS Safety Report 11256399 (Version 1)
Quarter: 2015Q3

REPORT INFORMATION
  Report Type: Spontaneous
  Country: None (occurrence: DK)
  Receive Date: 20150709
  Receipt Date: 20150709
  Transmission Date: 20151125
  Serious: Yes (Other)
  Sender: FDA-Public Use
  Company Number: DK-MEDAC PHARMA, INC.-1040448

PATIENT
  Age: 65 Year
  Sex: Female

DRUGS (10)
  1. ALENDRONATE SODIUM. [Concomitant]
     Active Substance: ALENDRONATE SODIUM
     Dates: end: 20130111
  2. CORODIL [Concomitant]
     Active Substance: DIPYRIDAMOLE
     Route: 048
     Dates: start: 20050127, end: 20110415
  3. CITALOPRAM [Concomitant]
     Active Substance: CITALOPRAM HYDROBROMIDE
     Route: 048
     Dates: start: 19960226
  4. BIOCLAVID [Concomitant]
     Active Substance: AMOXICILLIN\CLAVULANIC ACID
     Dates: start: 201211
  5. METHOTREXATE [Suspect]
     Active Substance: METHOTREXATE
     Indication: RHEUMATOID ARTHRITIS
     Route: 048
     Dates: start: 19880716
  6. FOLIMET [Concomitant]
     Route: 048
  7. REMICADE [Concomitant]
     Active Substance: INFLIXIMAB
     Dates: start: 2005, end: 20140128
  8. METHOTREXATE (METHOTREXATE SODIUM) [Suspect]
     Active Substance: METHOTREXATE SODIUM
     Route: 030
     Dates: start: 20020319, end: 20120529
  9. CALCICHEW D3 [Concomitant]
     Active Substance: CALCIUM\CHOLECALCIFEROL
     Route: 048
     Dates: start: 20050812, end: 20121201
  10. VAGIFEM [Concomitant]
     Active Substance: ESTRADIOL
     Route: 067
     Dates: start: 20050625

REACTIONS (2)
  - Cough [Recovered/Resolved]
  - Bronchiectasis [Not Recovered/Not Resolved]

NARRATIVE: CASE EVENT DATE: 201009
